FAERS Safety Report 13897192 (Version 1)
Quarter: 2017Q3

REPORT INFORMATION
  Report Type: Spontaneous
  Country: US (occurrence: US)
  Receive Date: 20170823
  Receipt Date: 20170823
  Transmission Date: 20171127
  Serious: Yes (Hospitalization, Other)
  Sender: FDA-Public Use
  Company Number: US-GLAXOSMITHKLINE-US2017GSK128324

PATIENT
  Age: 39 Year
  Sex: Female
  Weight: 80.72 kg

DRUGS (44)
  1. XYREM [Suspect]
     Active Substance: SODIUM OXYBATE
     Indication: NARCOLEPSY
     Dosage: 3 G, BID
     Route: 048
     Dates: start: 201105, end: 201111
  2. BISOPROLOL FUMARATE. [Concomitant]
     Active Substance: BISOPROLOL FUMARATE
     Dosage: UNK
     Dates: start: 201608
  3. LYRICA [Concomitant]
     Active Substance: PREGABALIN
     Dosage: 100 MG, UNK
     Dates: end: 201601
  4. BYSTOLIC [Concomitant]
     Active Substance: NEBIVOLOL HYDROCHLORIDE
     Dosage: UNK
     Dates: end: 201608
  5. CLEOCIN [Concomitant]
     Active Substance: CLINDAMYCIN PHOSPHATE
     Dosage: UNK
     Dates: end: 201601
  6. XYREM [Suspect]
     Active Substance: SODIUM OXYBATE
     Dosage: UNK
     Route: 048
     Dates: start: 201111, end: 201506
  7. FLECTOR [Concomitant]
     Active Substance: DICLOFENAC EPOLAMINE
     Dosage: UNK
     Dates: start: 20031101, end: 201601
  8. MAXALT-MLT [Concomitant]
     Active Substance: RIZATRIPTAN BENZOATE
     Dosage: UNK
     Dates: end: 201601
  9. ZEBETA [Concomitant]
     Active Substance: BISOPROLOL FUMARATE
     Indication: HYPERTENSION
  10. DICLOFENAC SODIUM. [Concomitant]
     Active Substance: DICLOFENAC SODIUM
     Indication: INFLAMMATION
     Dosage: UNK
     Dates: start: 201603
  11. ZOMIG [Concomitant]
     Active Substance: ZOLMITRIPTAN
     Dosage: UNK
     Dates: start: 20140814, end: 201501
  12. TIZANIDINE HYDROCHLORIDE. [Concomitant]
     Active Substance: TIZANIDINE HYDROCHLORIDE
     Dosage: UNK
     Dates: start: 20130122, end: 201608
  13. CYCLOBENZAPRINE. [Concomitant]
     Active Substance: CYCLOBENZAPRINE
     Dosage: UNK
     Dates: end: 201601
  14. CYMBALTA [Concomitant]
     Active Substance: DULOXETINE HYDROCHLORIDE
     Dosage: UNK
     Dates: end: 201602
  15. LO LOESTRIN FE [Concomitant]
     Active Substance: ETHINYL ESTRADIOL\NORETHINDRONE ACETATE
     Indication: HORMONE LEVEL ABNORMAL
  16. SAVELLA [Concomitant]
     Active Substance: MILNACIPRAN HYDROCHLORIDE
     Dosage: UNK
     Dates: end: 201603
  17. METHOTREXATE. [Concomitant]
     Active Substance: METHOTREXATE
     Indication: BEHCET^S SYNDROME
     Dosage: UNK
     Dates: start: 20160930
  18. ALMOTRIPTAN MALATE. [Concomitant]
     Active Substance: ALMOTRIPTAN MALATE
     Dosage: UNK
     Dates: start: 201602, end: 201608
  19. CLARITIN (GLICLAZIDE) [Concomitant]
     Active Substance: GLICLAZIDE
     Indication: HYPERSENSITIVITY
     Dosage: UNK
  20. INDOMETHACIN. [Concomitant]
     Active Substance: INDOMETHACIN
     Indication: MIGRAINE
  21. VITAMIN D3 [Concomitant]
     Active Substance: CHOLECALCIFEROL
  22. ZOLPIDEM TARTRATE. [Concomitant]
     Active Substance: ZOLPIDEM TARTRATE
     Dosage: UNK
     Dates: start: 201604, end: 201608
  23. ASTEPRO [Concomitant]
     Active Substance: AZELASTINE HYDROCHLORIDE
     Dosage: UNK
     Dates: end: 201508
  24. LO LOESTRIN FE [Concomitant]
     Active Substance: ETHINYL ESTRADIOL\NORETHINDRONE ACETATE
     Indication: MIGRAINE
  25. PROTONIX (OMEPRAZOLE) [Concomitant]
     Active Substance: OMEPRAZOLE
     Dosage: UNK
     Dates: end: 201608
  26. TRINTELLIX [Concomitant]
     Active Substance: VORTIOXETINE HYDROBROMIDE
  27. PREDNISONE. [Suspect]
     Active Substance: PREDNISONE
     Indication: BEHCET^S SYNDROME
     Dosage: UNK
     Dates: start: 201604
  28. CHOLESTYRAMINE. [Concomitant]
     Active Substance: CHOLESTYRAMINE
     Dosage: UNK
     Dates: start: 20160930
  29. METAXALONE. [Concomitant]
     Active Substance: METAXALONE
     Dosage: UNK
     Dates: start: 20160930
  30. NORCO [Concomitant]
     Active Substance: ACETAMINOPHEN\HYDROCODONE BITARTRATE
     Dosage: UNK
     Dates: start: 201603
  31. HYOMAX [Concomitant]
     Active Substance: HYOSCYAMINE SULFATE
     Dosage: UNK
     Dates: end: 201601
  32. KETOCONAZOLE. [Concomitant]
     Active Substance: KETOCONAZOLE
     Indication: SKIN DISORDER
  33. WELLBUTRIN [Suspect]
     Active Substance: BUPROPION HYDROCHLORIDE
     Indication: PRODUCT USED FOR UNKNOWN INDICATION
  34. XYREM [Suspect]
     Active Substance: SODIUM OXYBATE
     Dosage: 4.5 G, BID
     Route: 048
     Dates: start: 201506
  35. NATURE-THROID [Concomitant]
     Active Substance: THYROID, PORCINE
     Indication: HYPOTHYROIDISM
  36. BUSPAR [Concomitant]
     Active Substance: BUSPIRONE HYDROCHLORIDE
     Indication: ANXIETY
  37. ZEBETA [Concomitant]
     Active Substance: BISOPROLOL FUMARATE
     Indication: AUTONOMIC NERVOUS SYSTEM IMBALANCE
  38. ZANTAC [Suspect]
     Active Substance: RANITIDINE HYDROCHLORIDE
     Indication: BEHCET^S SYNDROME
  39. LYRICA [Concomitant]
     Active Substance: PREGABALIN
     Indication: FIBROMYALGIA
     Dosage: 75 MG, UNK
     Dates: start: 201601
  40. ALPRAZOLAM. [Concomitant]
     Active Substance: ALPRAZOLAM
     Indication: ANXIETY
     Dosage: UNK
     Dates: start: 20130531
  41. TOPIRAMATE. [Concomitant]
     Active Substance: TOPIRAMATE
     Dosage: UNK
     Dates: end: 201601
  42. VITAMIN D CAPSULES (ERGOCALCIFEROL) [Concomitant]
  43. HYDROCODONE [Concomitant]
     Active Substance: HYDROCODONE
     Indication: MIGRAINE
  44. ERYTHROMYCIN. [Concomitant]
     Active Substance: ERYTHROMYCIN
     Indication: SKIN DISORDER

REACTIONS (7)
  - Drug interaction [Unknown]
  - Off label use [Unknown]
  - Depression [Not Recovered/Not Resolved]
  - Behcet^s syndrome [Unknown]
  - Incoherent [Unknown]
  - Autonomic nervous system imbalance [Unknown]
  - Weight increased [Unknown]

NARRATIVE: CASE EVENT DATE: 201601
